FAERS Safety Report 7085286 (Version 1)
Quarter: 2020Q3

REPORT INFORMATION
  Report Type: Report from Study
  Country: DE (occurrence: DE)
  Receive Date: 20070521
  Receipt Date: 20070521
  Transmission Date: 20201105
  Serious: Yes (Hospitalization)
  Sender: FDA-Public Use
  Company Number: DE-ASTRAZENECA-2007PK00837

PATIENT
  Age: 23833 Day
  Sex: Male
  Weight: 63 kg

DRUGS (7)
  1. CEDIRANIB. [Suspect]
     Active Substance: CEDIRANIB
     Indication: COLORECTAL CANCER METASTATIC
     Route: 048
     Dates: start: 20070115
  2. LISIBETA [Concomitant]
     Indication: HYPERTENSION
     Route: 048
     Dates: start: 200601
  3. BISOPROLOL [Concomitant]
     Active Substance: BISOPROLOL
     Indication: HYPERTENSION
     Route: 048
     Dates: start: 20070213
  4. OMEPRAZOLE. [Concomitant]
     Active Substance: OMEPRAZOLE
     Indication: GASTROOESOPHAGEAL REFLUX DISEASE
     Route: 048
     Dates: start: 200601
  5. SALVIA OFFICINALIS\TETRACAINE HYDROCHLORIDE [Concomitant]
     Indication: MUCOSAL INFLAMMATION
     Route: 048
     Dates: start: 20070410
  6. FLUOROURACIL\LEUCOVORIN CALCIUM\OXALIPLATIN [Suspect]
     Active Substance: FLUOROURACIL\LEUCOVORIN CALCIUM\OXALIPLATIN
     Indication: COLORECTAL CANCER METASTATIC
     Route: 042
     Dates: start: 20070115
  7. DEXPANTHENOL\DOMIPHEN BROMIDE [Concomitant]
     Indication: MUCOSAL INFLAMMATION
     Dates: start: 20070410

REACTIONS (1)
  - General physical health deterioration [Recovered/Resolved]

NARRATIVE: CASE EVENT DATE: 20070410
